FAERS Safety Report 20008830 (Version 1)
Quarter: 2021Q4

REPORT INFORMATION
  Report Type: Spontaneous
  Country: US (occurrence: US)
  Receive Date: 20211028
  Receipt Date: 20211028
  Transmission Date: 20220303
  Serious: Yes (Other)
  Sender: FDA-Public Use
  Company Number: US-BLUEPRINT MEDICINES CORPORATION-SP-US-2021-001963

PATIENT
  Sex: Female

DRUGS (1)
  1. AYVAKIT [Suspect]
     Active Substance: AVAPRITINIB
     Indication: Neoplasm malignant
     Route: 048
     Dates: start: 20171101

REACTIONS (7)
  - Gastrointestinal carcinoma [Unknown]
  - Diverticulitis [Unknown]
  - Gastrointestinal polyp [Unknown]
  - Drug ineffective [Unknown]
  - Haemorrhoids [Unknown]
  - Off label use [Unknown]
  - Off label use [Unknown]
